APPROVED DRUG PRODUCT: ESCITALOPRAM OXALATE
Active Ingredient: ESCITALOPRAM OXALATE
Strength: EQ 20MG BASE
Dosage Form/Route: TABLET;ORAL
Application: A077550 | Product #003
Applicant: NOVITIUM PHARMA LLC
Approved: May 14, 2015 | RLD: No | RS: No | Type: DISCN